FAERS Safety Report 6937634-6 (Version None)
Quarter: 2010Q3

REPORT INFORMATION
  Report Type: 
  Country: None (occurrence: None)
  Receive Date: 20100820
  Receipt Date: 20100820
  Transmission Date: 20110219
  Serious: No
  Sender: FDA-Public Use
  Company Number: None

PATIENT
  Age: 88 Year
  Sex: Female
  Weight: 57.6068 kg

DRUGS (2)
  1. ISOSORBIDE MONONITRATE [Suspect]
     Indication: ANGINA PECTORIS
     Dosage: 1 - 60MG ONCE A DAY MOUTH
     Route: 048
     Dates: start: 20100802
  2. ISOSORBIDE MONONITRATE [Suspect]
     Indication: PROPHYLAXIS
     Dosage: 1 - 60MG ONCE A DAY MOUTH
     Route: 048
     Dates: start: 20100802

REACTIONS (4)
  - DIZZINESS [None]
  - FALL [None]
  - HEAD INJURY [None]
  - SYNCOPE [None]
